FAERS Safety Report 22239356 (Version 1)
Quarter: 2023Q2

REPORT INFORMATION
  Report Type: Spontaneous
  Country: CA (occurrence: None)
  Receive Date: 20230420
  Receipt Date: 20230420
  Transmission Date: 20230721
  Serious: Yes (Disabling)
  Sender: FDA-Public Use
  Company Number: None

PATIENT
  Age: 26 Year
  Sex: Female
  Weight: 56.25 kg

DRUGS (2)
  1. VYVANSE [Suspect]
     Active Substance: LISDEXAMFETAMINE DIMESYLATE
     Indication: Attention deficit hyperactivity disorder
     Dosage: OTHER QUANTITY : 1 CAPSULE(S);?
     Route: 048
     Dates: start: 20210101
  2. Lolo Loestrin [Concomitant]

REACTIONS (12)
  - Therapeutic product effect incomplete [None]
  - Brain fog [None]
  - Asthenia [None]
  - Fatigue [None]
  - Irritability [None]
  - Hyperhidrosis [None]
  - Fatigue [None]
  - Nervousness [None]
  - Cognitive disorder [None]
  - Anxiety [None]
  - Increased appetite [None]
  - Insomnia [None]

NARRATIVE: CASE EVENT DATE: 20230101
